FAERS Safety Report 7806680-2 (Version None)
Quarter: 2011Q4

REPORT INFORMATION
  Report Type: 
  Country: None (occurrence: None)
  Receive Date: 20111011
  Receipt Date: 20111003
  Transmission Date: 20120403
  Serious: Yes (Other)
  Sender: FDA-Public Use
  Company Number: US-JNJFOC-20110808804

PATIENT
  Sex: Female
  Weight: 87.09 kg

DRUGS (3)
  1. ELMIRON [Suspect]
     Indication: CYSTITIS INTERSTITIAL
     Route: 048
     Dates: start: 20110701
  2. TIMOLOL MALEATE [Concomitant]
     Indication: GLAUCOMA
     Dosage: 2 DROPS A DAY
     Route: 047
  3. OXYBUTYNIN [Suspect]
     Indication: CYSTITIS INTERSTITIAL
     Route: 048
     Dates: start: 20040101, end: 20110701

REACTIONS (2)
  - INTRAOCULAR PRESSURE INCREASED [None]
  - INCORRECT DOSE ADMINISTERED [None]
